FAERS Safety Report 24046130 (Version 1)
Quarter: 2024Q3

REPORT INFORMATION
  Report Type: Spontaneous
  Country: FR (occurrence: FR)
  Receive Date: 20240703
  Receipt Date: 20240703
  Transmission Date: 20241017
  Serious: Yes (Hospitalization, Other)
  Sender: NOVARTIS
  Company Number: None

PATIENT
  Sex: Female
  Weight: 2.36 kg

DRUGS (6)
  1. ENTRESTO [Suspect]
     Active Substance: SACUBITRIL\VALSARTAN
     Indication: Foetal exposure during pregnancy
     Dosage: UNK (1CP MATIN ET SOIR)
     Route: 050
     Dates: start: 20210824, end: 20210920
  2. DAPAGLIFLOZIN [Suspect]
     Active Substance: DAPAGLIFLOZIN
     Indication: Foetal exposure during pregnancy
     Dosage: MATERNAL EXPOSURE DURING PREGNANCY: 10 MG
     Route: 050
     Dates: start: 20210911, end: 20210920
  3. ALDACTONE [Suspect]
     Active Substance: SPIRONOLACTONE
     Indication: Foetal exposure during pregnancy
     Dosage: MATERNAL EXPOSURE DURING PREGNANCY: 50 MG, QD
     Route: 050
     Dates: start: 20210824, end: 20210920
  4. FUROSEMIDE [Suspect]
     Active Substance: FUROSEMIDE
     Indication: Foetal exposure during pregnancy
     Dosage: MATERNAL EXPOSURE DURING PREGNANCY: 40 MG (1CP LE MATIN, PUIS ? PARTIR DU 20/09/2021 2 CP PAR JOUR (
     Route: 050
     Dates: start: 20210824, end: 20220427
  5. BISOPROLOL [Suspect]
     Active Substance: BISOPROLOL\BISOPROLOL FUMARATE
     Indication: Foetal exposure during pregnancy
     Dosage: MATERNAL EXPOSURE DURING PREGNANCY: 5 MG, QD
     Route: 050
     Dates: start: 20210824, end: 20210920
  6. BISOPROLOL [Suspect]
     Active Substance: BISOPROLOL\BISOPROLOL FUMARATE
     Dosage: MATERNAL EXPOSURE DURING PREGNANCY: 5 MG, Q12H (5MG LE MATIN, PUIS AUGMENT? ? 5MG LE MATIN ET LE SOI
     Route: 050
     Dates: start: 20210920, end: 20220427

REACTIONS (4)
  - Left ventricular dysfunction [Unknown]
  - Patent ductus arteriosus [Unknown]
  - Maternal exposure during pregnancy [Unknown]
  - Maternal exposure during pregnancy [Unknown]
